FAERS Safety Report 6902717-3 (Version None)
Quarter: 2010Q3

REPORT INFORMATION
  Report Type: 
  Country: None (occurrence: None)
  Receive Date: 20100803
  Receipt Date: 20080725
  Transmission Date: 20110219
  Serious: No
  Sender: FDA-Public Use
  Company Number: US-PFIZER INC-2008063549

PATIENT
  Sex: Female
  Weight: 67.272 kg

DRUGS (7)
  1. LYRICA [Suspect]
     Indication: PAIN
     Dates: start: 20071101
  2. LYRICA [Suspect]
     Indication: BONE NEOPLASM
  3. LYRICA [Suspect]
     Indication: INTERVERTEBRAL DISC DEGENERATION
  4. NEXIUM [Concomitant]
  5. CITRACAL [Concomitant]
  6. VITAMIN D [Concomitant]
  7. ALL OTHER THERAPEUTIC PRODUCTS [Concomitant]

REACTIONS (5)
  - FEELING ABNORMAL [None]
  - INCREASED APPETITE [None]
  - JOINT SWELLING [None]
  - OEDEMA PERIPHERAL [None]
  - WEIGHT INCREASED [None]
